FAERS Safety Report 6671717-3 (Version None)
Quarter: 2010Q2

REPORT INFORMATION
  Report Type: 
  Country: None (occurrence: None)
  Receive Date: 20100407
  Receipt Date: 20100402
  Transmission Date: 20101027
  Serious: Yes (Death)
  Sender: FDA-Public Use
  Company Number: PHEH2010US03014

PATIENT
  Sex: Male
  Weight: 132.43 kg

DRUGS (5)
  1. METOPIRONE [Suspect]
     Indication: HYPERCORTICOIDISM
     Dosage: 250 MG, TID
     Route: 048
  2. MITOTANE [Concomitant]
     Route: 048
  3. ALDACTONE [Concomitant]
     Route: 048
  4. GLYBURIDE [Concomitant]
     Route: 048
  5. INSULIN [Concomitant]

REACTIONS (1)
  - ADRENAL CARCINOMA [None]
